FAERS Safety Report 10384169 (Version 2)
Quarter: 2014Q3

REPORT INFORMATION
  Report Type: Spontaneous
  Country: US (occurrence: US)
  Receive Date: 20140814
  Receipt Date: 20140922
  Transmission Date: 20150326
  Serious: No
  Sender: FDA-Public Use
  Company Number: US-PFIZER INC-2014223014

PATIENT
  Age: 26 Year
  Sex: Male

DRUGS (2)
  1. TYLENOL [Suspect]
     Active Substance: ACETAMINOPHEN
     Dosage: 2 CAPSULES AT ONCE
  2. TYLENOL [Suspect]
     Active Substance: ACETAMINOPHEN
     Dosage: 4 CAPSULES AT ONCE
     Dates: start: 20140806

REACTIONS (3)
  - Feeling abnormal [Unknown]
  - Dysarthria [Unknown]
  - Overdose [Unknown]

NARRATIVE: CASE EVENT DATE: 201408
